FAERS Safety Report 11165926 (Version 2)
Quarter: 2015Q2

REPORT INFORMATION
  Report Type: Report from Study
  Country: PL (occurrence: PL)
  Receive Date: 20150604
  Receipt Date: 20150605
  Transmission Date: 20150821
  Serious: Yes (Hospitalization)
  Sender: FDA-Public Use
  Company Number: PL-EISAI MEDICAL RESEARCH-E7080-01478-CLI-PL

PATIENT
  Age: 65 Year
  Sex: Male
  Weight: 75 kg

DRUGS (18)
  1. LENVATINIB [Suspect]
     Active Substance: LENVATINIB
     Route: 048
     Dates: start: 20140413, end: 20140622
  2. CLEXANE [Concomitant]
     Active Substance: ENOXAPARIN SODIUM
  3. EUTHYROX [Concomitant]
     Active Substance: LEVOTHYROXINE SODIUM
  4. NOLPAZA [Concomitant]
     Active Substance: PANTOPRAZOLE SODIUM
  5. LENVATINIB [Suspect]
     Active Substance: LENVATINIB
     Route: 048
     Dates: start: 20140311, end: 20140322
  6. ADIPINE [Concomitant]
  7. CLOPIDIX [Concomitant]
  8. ATROX [Concomitant]
  9. LICETAM [Concomitant]
  10. LENVATINIB [Suspect]
     Active Substance: LENVATINIB
     Route: 048
     Dates: start: 20140628, end: 20141012
  11. ZANACODAR [Concomitant]
  12. CARIDENT [Concomitant]
  13. LENVATINIB [Suspect]
     Active Substance: LENVATINIB
     Indication: RENAL CELL CARCINOMA
     Route: 048
     Dates: start: 20130524, end: 20131007
  14. TERTENSIF [Concomitant]
  15. ACARD [Concomitant]
     Active Substance: ASPIRIN
  16. LOKREN [Concomitant]
     Active Substance: BETAXOLOL HYDROCHLORIDE
  17. LENVATINIB [Suspect]
     Active Substance: LENVATINIB
     Route: 048
     Dates: start: 20131014, end: 20140306
  18. LENVATINIB [Suspect]
     Active Substance: LENVATINIB
     Route: 048
     Dates: start: 20141018, end: 20141203

REACTIONS (2)
  - Ischaemic stroke [Recovered/Resolved with Sequelae]
  - Carotid artery occlusion [Recovered/Resolved with Sequelae]

NARRATIVE: CASE EVENT DATE: 20140322
